FAERS Safety Report 6444802-9 (Version None)
Quarter: 2009Q4

REPORT INFORMATION
  Report Type: 
  Country: None (occurrence: None)
  Receive Date: 20091118
  Receipt Date: 20091105
  Transmission Date: 20100525
  Serious: Yes (Hospitalization, Other)
  Sender: FDA-Public Use
  Company Number: PHHY2009PL48533

PATIENT
  Sex: Female
  Weight: 57.5 kg

DRUGS (5)
  1. MYFORTIC [Suspect]
     Indication: RENAL TRANSPLANT
     Dosage: 1440 MG DAILY
     Route: 048
     Dates: start: 20090623, end: 20090929
  2. PROGRAF [Concomitant]
     Indication: RENAL TRANSPLANT
     Dosage: 14 MG, UNK
     Dates: start: 20090623, end: 20090929
  3. PROGRAF [Concomitant]
     Dosage: 12 MG, UNK
  4. CALCORT [Concomitant]
     Indication: RENAL TRANSPLANT
     Dosage: 24 MG, UNK
     Dates: start: 20090623, end: 20090929
  5. CERTICAN [Concomitant]

REACTIONS (4)
  - ANAEMIA [None]
  - CYTOMEGALOVIRUS INFECTION [None]
  - RENAL IMPAIRMENT [None]
  - RENAL TUBULAR DISORDER [None]
